FAERS Safety Report 4391634-1 (Version None)
Quarter: 2004Q3

REPORT INFORMATION
  Report Type: 
  Country: None (occurrence: None)
  Receive Date: 20040701
  Receipt Date: 20040521
  Transmission Date: 20050211
  Serious: Yes (Hospitalization)
  Sender: FDA-Public Use
  Company Number: LOV-US-04-00180

PATIENT
  Age: 47 Year
  Sex: Male

DRUGS (1)
  1. ALTOCOR [Suspect]
     Indication: HYPERCHOLESTEROLAEMIA
     Dosage: 20 MG PO HS
     Route: 048
     Dates: start: 20040305, end: 20040315

REACTIONS (1)
  - CARTILAGE INJURY [None]
